FAERS Safety Report 9460001 (Version 1)
Quarter: 2013Q3

REPORT INFORMATION
  Report Type: Spontaneous
  Country: US (occurrence: US)
  Receive Date: 20130815
  Receipt Date: 20130815
  Transmission Date: 20140515
  Serious: No
  Sender: FDA-Public Use
  Company Number: US-B.I. PHARMACEUTICALS,INC./RIDGEFIELD-2013-BI-24110BP

PATIENT
  Age: 77 Year
  Sex: Female
  Weight: 39 kg

DRUGS (5)
  1. COMBIVENT [Suspect]
     Indication: CHRONIC OBSTRUCTIVE PULMONARY DISEASE
     Dosage: STRENGTH: 20 MCG / 100 MCG; DAILY DOSE: 160 MCG/ 800 MCG
     Route: 055
     Dates: start: 201307, end: 20130801
  2. LISINOPRIL [Concomitant]
     Indication: HYPERTENSION
     Dosage: 10 MG
     Route: 048
  3. LASIX [Concomitant]
     Indication: CARDIAC FAILURE CONGESTIVE
     Dosage: 20 MG
     Route: 048
  4. EPLERENONE [Concomitant]
     Indication: CARDIAC FAILURE CONGESTIVE
     Dosage: 12.5 MG
     Route: 048
  5. PREDNISONE [Concomitant]
     Indication: CHRONIC OBSTRUCTIVE PULMONARY DISEASE
     Dosage: 10 MG
     Route: 048

REACTIONS (12)
  - Eye pain [Recovered/Resolved]
  - Rhinorrhoea [Not Recovered/Not Resolved]
  - Chest pain [Not Recovered/Not Resolved]
  - Dyspnoea [Not Recovered/Not Resolved]
  - Urinary retention [Not Recovered/Not Resolved]
  - Local swelling [Not Recovered/Not Resolved]
  - Dysphonia [Not Recovered/Not Resolved]
  - Asthenia [Not Recovered/Not Resolved]
  - Wheezing [Not Recovered/Not Resolved]
  - Increased bronchial secretion [Recovered/Resolved]
  - Vision blurred [Recovered/Resolved]
  - Drug prescribing error [Recovered/Resolved]
